FAERS Safety Report 7769167-1 (Version None)
Quarter: 2011Q3

REPORT INFORMATION
  Report Type: 
  Country: None (occurrence: None)
  Receive Date: 20110922
  Receipt Date: 20110909
  Transmission Date: 20111222
  Serious: Yes (Other)
  Sender: FDA-Public Use
  Company Number: DE-ELI_LILLY_AND_COMPANY-DE201107005124

PATIENT
  Sex: Female

DRUGS (3)
  1. THYROID THERAPY [Concomitant]
  2. FORTEO [Suspect]
     Indication: OSTEOPOROSIS
     Dosage: UNK, QD
     Route: 058
     Dates: start: 20110609
  3. CALCIUM CARBONATE [Concomitant]

REACTIONS (5)
  - RESPIRATORY DISTRESS [None]
  - ARRHYTHMIA [None]
  - BONE PAIN [None]
  - FLUID RETENTION [None]
  - OEDEMA PERIPHERAL [None]
